FAERS Safety Report 13452487 (Version 1)
Quarter: 2017Q2

REPORT INFORMATION
  Report Type: Spontaneous
  Country: US (occurrence: US)
  Receive Date: 20170418
  Receipt Date: 20170418
  Transmission Date: 20170830
  Serious: No
  Sender: FDA-Public Use
  Company Number: US-TEVA-710816USA

PATIENT
  Age: 82 Year
  Sex: Male
  Weight: 99.79 kg

DRUGS (9)
  1. ROBITUSSIN COUGH AND CHEST CONGESTION DM MAX [Suspect]
     Active Substance: DEXTROMETHORPHAN HYDROBROMIDE\GUAIFENESIN
     Indication: PULMONARY CONGESTION
     Route: 048
     Dates: start: 20161010, end: 20161010
  2. ROBITUSSIN COUGH AND CHEST CONGESTION DM MAX [Suspect]
     Active Substance: DEXTROMETHORPHAN HYDROBROMIDE\GUAIFENESIN
     Indication: COUGH
  3. GLIMEPIRIDE. [Suspect]
     Active Substance: GLIMEPIRIDE
     Dosage: 4 MILLIGRAM DAILY;
     Route: 048
  4. PRAVASTATIN. [Suspect]
     Active Substance: PRAVASTATIN
     Dosage: 80 MILLIGRAM DAILY; BEDTIME
     Route: 048
  5. DIGOXIN. [Suspect]
     Active Substance: DIGOXIN
     Dosage: .125 MILLIGRAM DAILY;
     Route: 048
  6. TRAZODONE [Suspect]
     Active Substance: TRAZODONE HYDROCHLORIDE
     Dosage: 50 MILLIGRAM DAILY; BEDTIME
     Route: 048
  7. WARFARIN [Suspect]
     Active Substance: WARFARIN
     Dosage: ALTERNATING DOSES BEFORE BED MON/WED/FRI
     Route: 048
  8. WARFARIN [Suspect]
     Active Substance: WARFARIN
     Dosage: ALTERNATING DOSES BEFORE BED TUES/THURS
     Route: 048
  9. RAMIPRIL. [Suspect]
     Active Substance: RAMIPRIL
     Dosage: 10 GBQ DAILY;
     Route: 048

REACTIONS (1)
  - Diarrhoea [Unknown]

NARRATIVE: CASE EVENT DATE: 20161011
